FAERS Safety Report 11111841 (Version 1)
Quarter: 2015Q2

REPORT INFORMATION
  Report Type: Spontaneous
  Country: DE (occurrence: DE)
  Receive Date: 20150514
  Receipt Date: 20150514
  Transmission Date: 20150821
  Serious: Yes (Other)
  Sender: FDA-Public Use
  Company Number: DE-PFIZER INC-2015133809

PATIENT
  Age: 71 Year
  Sex: Male
  Weight: 73 kg

DRUGS (7)
  1. ARCOXIA [Concomitant]
     Active Substance: ETORICOXIB
     Dosage: 90 UNK, 1X/DAY (AT BEDTIME)
     Dates: start: 20150327, end: 20150412
  2. TAMSULOSIN [Concomitant]
     Active Substance: TAMSULOSIN
     Indication: MICTURITION DISORDER
     Dosage: 0.4 UNK, 1X/DAY
  3. CONCOR COR [Concomitant]
     Active Substance: BISOPROLOL FUMARATE
     Indication: HYPERTENSION
     Dosage: 1.25 UNK, 1X/DAY
  4. NEURONTIN [Suspect]
     Active Substance: GABAPENTIN
     Dosage: 300 MG, 4X/DAY
     Dates: start: 20150305, end: 20150412
  5. NEURONTIN [Suspect]
     Active Substance: GABAPENTIN
     Dosage: 300 MG, DAILY
  6. NEURONTIN [Suspect]
     Active Substance: GABAPENTIN
     Indication: NEURALGIA
     Dosage: 300 MG, 2X/DAY (IN THE EVENING)
     Dates: start: 20150212, end: 20150304
  7. ASPIRIN PROTECT [Concomitant]
     Active Substance: ASPIRIN
     Indication: CAROTID ARTERIOSCLEROSIS
     Dosage: 100 MG, 1X/DAY

REACTIONS (8)
  - Hypertension [Recovered/Resolved]
  - Asthenia [Recovered/Resolved]
  - Fatigue [Recovered/Resolved]
  - Sleep disorder [Recovered/Resolved]
  - Bundle branch block right [Recovered/Resolved]
  - Atrioventricular block first degree [Recovered/Resolved]
  - Blood pressure fluctuation [Recovered/Resolved]
  - Disturbance in attention [Recovered/Resolved]

NARRATIVE: CASE EVENT DATE: 20150412
